FAERS Safety Report 24625053 (Version 4)
Quarter: 2025Q1

REPORT INFORMATION
  Report Type: Spontaneous
  Country: JP (occurrence: JP)
  Receive Date: 20241115
  Receipt Date: 20250325
  Transmission Date: 20250409
  Serious: Yes (Other)
  Sender: REGENERON
  Company Number: JP-REGENERON PHARMACEUTICALS, INC.-2024-152993

PATIENT
  Age: 54 Year
  Sex: Female

DRUGS (1)
  1. LIBTAYO [Suspect]
     Active Substance: CEMIPLIMAB-RWLC
     Indication: Cervix carcinoma recurrent

REACTIONS (3)
  - Pyelonephritis [Recovering/Resolving]
  - Disease progression [Unknown]
  - Rash [Recovering/Resolving]
